FAERS Safety Report 10378077 (Version 1)
Quarter: 2014Q3

REPORT INFORMATION
  Report Type: Report from Study
  Country: CN (occurrence: CN)
  Receive Date: 20140812
  Receipt Date: 20140812
  Transmission Date: 20150326
  Serious: Yes (Death)
  Sender: FDA-Public Use
  Company Number: CN-SA-2014SA107390

PATIENT

DRUGS (3)
  1. CISPLATIN. [Suspect]
     Active Substance: CISPLATIN
     Indication: NON-SMALL CELL LUNG CANCER STAGE III
     Dosage: DOSE: 20-25 MG/M2/DAY ON DAYS 1-3.
     Route: 065
  2. THERAPEUTIC RADIOPHARMACEUTICALS [Suspect]
     Active Substance: RADIATION THERAPY
     Indication: NON-SMALL CELL LUNG CANCER STAGE III
     Dosage: DOSE: 60-66 GY IN 2.0-2.2 GY DAILY FRACTIONS. 5 FRACTIONS A WEEK USUALLY USED.
     Route: 065
  3. DOCETAXEL [Suspect]
     Active Substance: DOCETAXEL
     Indication: NON-SMALL CELL LUNG CANCER STAGE III
     Dosage: DOSE: 65-70 MG/M2/DAY ON DAY1
     Route: 065

REACTIONS (1)
  - Radiation pneumonitis [Fatal]
